FAERS Safety Report 19717456 (Version 1)
Quarter: 2021Q3

REPORT INFORMATION
  Report Type: Spontaneous
  Country: US (occurrence: US)
  Receive Date: 20210819
  Receipt Date: 20210819
  Transmission Date: 20211014
  Serious: No
  Sender: FDA-Public Use
  Company Number: US-AUROBINDO-AUR-APL-2021-026967

PATIENT
  Age: 84 Year
  Sex: Female
  Weight: 86 kg

DRUGS (2)
  1. CLORAZEPATE DIPOTASSIUM TABLETS 15MG [Suspect]
     Active Substance: CLORAZEPATE DIPOTASSIUM
     Indication: PALPITATIONS
     Dosage: UNK UNK, TWO TIMES A DAY
     Route: 048
  2. SERTRALINE [Concomitant]
     Active Substance: SERTRALINE HYDROCHLORIDE
     Indication: BLOOD PRESSURE MEASUREMENT
     Dosage: UNK
     Route: 065

REACTIONS (1)
  - Drug ineffective [Unknown]
